FAERS Safety Report 5338444-6 (Version None)
Quarter: 2007Q2

REPORT INFORMATION
  Report Type: 
  Country: None (occurrence: None)
  Receive Date: 20070530
  Receipt Date: 20070524
  Transmission Date: 20071010
  Serious: Yes (Hospitalization)
  Sender: FDA-Public Use
  Company Number: DE-ELI_LILLY_AND_COMPANY-DE200705006436

PATIENT
  Age: 64 Year
  Sex: Male
  Weight: 98 kg

DRUGS (7)
  1. GEMZAR [Suspect]
     Indication: PANCREATIC CARCINOMA
     Dosage: 2000 MG, UNK
     Route: 042
     Dates: end: 20070430
  2. ASPIRIN [Concomitant]
  3. TAVOR [Concomitant]
  4. NOVALGIN [Concomitant]
  5. ALLOPURINOL [Concomitant]
  6. METFORMIN HCL [Concomitant]
     Route: 048
     Dates: end: 20070501
  7. INSULIN [Concomitant]
     Dosage: UNK, AS NEEDED

REACTIONS (5)
  - LOCALISED OEDEMA [None]
  - OEDEMA PERIPHERAL [None]
  - PERICARDIAL EFFUSION [None]
  - PLEURAL EFFUSION [None]
  - WEIGHT INCREASED [None]
